FAERS Safety Report 4484613-7 (Version None)
Quarter: 2004Q3

REPORT INFORMATION
  Report Type: 
  Country: None (occurrence: None)
  Receive Date: 20040921
  Receipt Date: 20031110
  Transmission Date: 20050211
  Serious: Yes (Other)
  Sender: FDA-Public Use
  Company Number: 163-20785-03110213

PATIENT
  Age: 72 Year
  Sex: Male

DRUGS (6)
  1. THALOMID [Suspect]
     Indication: MULTIPLE MYELOMA
     Dosage: 100 MG, DAILY, ORAL
     Route: 048
     Dates: start: 20010816, end: 20031101
  2. LISINOPRIL [Concomitant]
  3. FUROSEMIDE [Concomitant]
  4. KLOR-CON (POOTASSIUM CHLORIDE) [Concomitant]
  5. OXYCODONE HCL [Concomitant]
  6. DEXAMETHASONE [Concomitant]

REACTIONS (4)
  - GAIT DISTURBANCE [None]
  - MYOCARDIAL INFARCTION [None]
  - PARAESTHESIA [None]
  - SENSATION OF HEAVINESS [None]
